FAERS Safety Report 21539810 (Version 7)
Quarter: 2023Q1

REPORT INFORMATION
  Report Type: Report from Study
  Country: US (occurrence: US)
  Receive Date: 20221102
  Receipt Date: 20230329
  Transmission Date: 20230417
  Serious: Yes (Other)
  Sender: FDA-Public Use
  Company Number: US-NOVARTISTESTPH-NVSC2022US245997

PATIENT
  Sex: Female

DRUGS (1)
  1. COSENTYX [Suspect]
     Active Substance: SECUKINUMAB
     Indication: Psoriasis
     Dosage: 300 MG, QW
     Route: 058

REACTIONS (5)
  - Nephrolithiasis [Recovering/Resolving]
  - Injection site pain [Unknown]
  - Arthralgia [Not Recovered/Not Resolved]
  - Decreased activity [Unknown]
  - Pain [Unknown]
